FAERS Safety Report 6542323-6 (Version None)
Quarter: 2010Q1

REPORT INFORMATION
  Report Type: 
  Country: None (occurrence: None)
  Receive Date: 20100114
  Receipt Date: 20100114
  Transmission Date: 20100710
  Serious: Yes (Other)
  Sender: FDA-Public Use
  Company Number: None

PATIENT
  Age: 79 Year
  Sex: Female
  Weight: 68.4932 kg

DRUGS (1)
  1. KAPIDEX [Suspect]
     Dosage: 1 DAY OTHER
     Route: 050

REACTIONS (1)
  - DIARRHOEA [None]
